FAERS Safety Report 18339941 (Version 5)
Quarter: 2024Q3

REPORT INFORMATION
  Report Type: Report from Study
  Country: US (occurrence: US)
  Receive Date: 20201002
  Receipt Date: 20240826
  Transmission Date: 20241017
  Serious: Yes (Other)
  Sender: TAKEDA
  Company Number: US-SHIRE-US202031869

PATIENT
  Age: 67 Year
  Sex: Male

DRUGS (4)
  1. VELAGLUCERASE ALFA [Suspect]
     Active Substance: VELAGLUCERASE ALFA
     Indication: Gaucher^s disease
     Dosage: UNK
     Route: 042
     Dates: start: 20200513
  2. VELAGLUCERASE ALFA [Suspect]
     Active Substance: VELAGLUCERASE ALFA
     Dosage: UNK UNK, Q2WEEKS
     Route: 042
     Dates: start: 20200601
  3. VELAGLUCERASE ALFA [Suspect]
     Active Substance: VELAGLUCERASE ALFA
     Dosage: UNK
     Route: 042
     Dates: start: 20220513
  4. VELAGLUCERASE ALFA [Suspect]
     Active Substance: VELAGLUCERASE ALFA
     Dosage: UNK UNK, Q2WEEKS
     Route: 042

REACTIONS (12)
  - Nephrolithiasis [Recovering/Resolving]
  - Parkinson^s disease [Not Recovered/Not Resolved]
  - Platelet count increased [Recovering/Resolving]
  - Platelet count abnormal [Recovering/Resolving]
  - Blood test abnormal [Unknown]
  - Disease progression [Not Recovered/Not Resolved]
  - COVID-19 [Recovering/Resolving]
  - Spleen disorder [Not Recovered/Not Resolved]
  - Liver disorder [Not Recovered/Not Resolved]
  - Insurance issue [Unknown]
  - Product use issue [Recovering/Resolving]
  - Bone pain [Not Recovered/Not Resolved]

NARRATIVE: CASE EVENT DATE: 20221025
